FAERS Safety Report 17619075 (Version 2)
Quarter: 2020Q2

REPORT INFORMATION
  Report Type: Report from Study
  Country: FR (occurrence: FR)
  Receive Date: 20200402
  Receipt Date: 20200409
  Transmission Date: 20200713
  Serious: Yes (Death, Other)
  Sender: FDA-Public Use
  Company Number: FR-JAZZ-2020-FR-004325

PATIENT

DRUGS (3)
  1. DEFITELIO [Suspect]
     Active Substance: DEFIBROTIDE SODIUM
     Indication: PROPHYLAXIS
  2. DEFITELIO [Suspect]
     Active Substance: DEFIBROTIDE SODIUM
     Indication: VENOOCCLUSIVE LIVER DISEASE
     Dosage: 22 MG/KG/DAY
     Route: 042
     Dates: start: 20160724, end: 20160727
  3. HEPARIN [Concomitant]
     Active Substance: HEPARIN SODIUM
     Indication: VENOOCCLUSIVE LIVER DISEASE

REACTIONS (5)
  - Pseudomonal sepsis [Fatal]
  - Condition aggravated [Fatal]
  - Off label use [Unknown]
  - Renal failure [Fatal]
  - Graft versus host disease in liver [Fatal]

NARRATIVE: CASE EVENT DATE: 20161012
